FAERS Safety Report 7031154-9 (Version None)
Quarter: 2010Q4

REPORT INFORMATION
  Report Type: 
  Country: None (occurrence: None)
  Receive Date: 20101006
  Receipt Date: 20100927
  Transmission Date: 20110411
  Serious: Yes (Hospitalization, Other)
  Sender: FDA-Public Use
  Company Number: US-ABBOTT-10P-163-0673880-00

PATIENT
  Sex: Female
  Weight: 47.67 kg

DRUGS (10)
  1. TRICOR [Suspect]
     Indication: BLOOD CHOLESTEROL INCREASED
     Dates: start: 20030201
  2. MORPHINE [Concomitant]
     Indication: NECK PAIN
     Dosage: EVERY 4 HOURS AS NEEDED
  3. DURAGESIC-100 [Concomitant]
     Indication: PAIN
     Dosage: PATCHES
  4. SYNTHROID [Concomitant]
     Indication: HYPOTHYROIDISM
  5. AVAPRO [Concomitant]
     Indication: RENAL FAILURE
  6. TOPROL-XL [Concomitant]
     Indication: HEART RATE IRREGULAR
  7. ALLOPURINOL [Concomitant]
     Indication: GOUT
  8. TIZANIDINE HCL [Concomitant]
     Indication: MUSCLE RELAXANT THERAPY
  9. PREVACID [Concomitant]
     Indication: GASTROOESOPHAGEAL REFLUX DISEASE
  10. REGLAN [Concomitant]
     Indication: GASTROOESOPHAGEAL REFLUX DISEASE

REACTIONS (13)
  - ARTERIOVENOUS FISTULA ANEURYSM [None]
  - ARTERIOVENOUS FISTULA THROMBOSIS [None]
  - BLOOD CREATINE PHOSPHOKINASE INCREASED [None]
  - DIPLEGIA [None]
  - FALL [None]
  - HEPATIC ENZYME INCREASED [None]
  - MUSCULAR WEAKNESS [None]
  - MYOCARDIAL ISCHAEMIA [None]
  - MYOTONIC DYSTROPHY [None]
  - PAIN IN EXTREMITY [None]
  - POSTOPERATIVE WOUND INFECTION [None]
  - ROTATOR CUFF SYNDROME [None]
  - WEIGHT DECREASED [None]
